FAERS Safety Report 4930622-0 (Version None)
Quarter: 2006Q1

REPORT INFORMATION
  Report Type: 
  Country: None (occurrence: None)
  Receive Date: 20060302
  Receipt Date: 20051003
  Transmission Date: 20060701
  Serious: Yes (Death)
  Sender: FDA-Public Use
  Company Number: US-MERCK-0510USA02779

PATIENT
  Age: 77 Year
  Sex: Female
  Weight: 91 kg

DRUGS (1)
  1. VIOXX [Suspect]
     Indication: ARTHRITIS
     Route: 048
     Dates: start: 20001116, end: 20020307

REACTIONS (5)
  - ARTHROPATHY [None]
  - CARDIOVASCULAR DISORDER [None]
  - CONTUSION [None]
  - FALL [None]
  - SPINAL DISORDER [None]
